FAERS Safety Report 23536062 (Version 1)
Quarter: 2024Q1

REPORT INFORMATION
  Report Type: Spontaneous
  Country: US (occurrence: US)
  Receive Date: 20240219
  Receipt Date: 20240219
  Transmission Date: 20240409
  Serious: No
  Sender: FDA-Public Use
  Company Number: US-TEVA-VS-3157545

PATIENT
  Sex: Female

DRUGS (4)
  1. CALCITRIOL [Suspect]
     Active Substance: CALCITRIOL
     Indication: Hypocalcaemia
     Dosage: REQUIREMENT INCREASED BY 3 TIMES IN SECOND TRIMESTER AND DECLINED BY 50% IN THIRD TRIMESTER
     Route: 065
  2. CALCITRIOL [Suspect]
     Active Substance: CALCITRIOL
     Indication: Hypocalcaemia
     Dosage: BASELINE
     Route: 065
  3. CALCIUM [Suspect]
     Active Substance: CALCIUM
     Indication: Hypocalcaemia
     Dosage: REQUIREMENT INCREASED BY 3 TIMES IN SECOND TRIMESTER AND LATER DECLINED TO BASELINE IN THIRD TRIM...
     Route: 065
  4. CALCIUM [Suspect]
     Active Substance: CALCIUM
     Indication: Hypocalcaemia
     Dosage: BASELINE
     Route: 065

REACTIONS (1)
  - Exposure during pregnancy [Unknown]
